FAERS Safety Report 4734549-9 (Version None)
Quarter: 2005Q3

REPORT INFORMATION
  Report Type: 
  Country: None (occurrence: None)
  Receive Date: 20050802
  Receipt Date: 20050721
  Transmission Date: 20060218
  Serious: Yes (Hospitalization)
  Sender: FDA-Public Use
  Company Number: 190074

PATIENT
  Age: 59 Year
  Sex: Female
  Weight: 73.4827 kg

DRUGS (2)
  1. AVONEX [Suspect]
     Indication: MULTIPLE SCLEROSIS
     Dosage: 30 UG;QW; IM
     Route: 030
     Dates: start: 20020301, end: 20020301
  2. THYROID PILL (NOS) [Concomitant]

REACTIONS (3)
  - BACK PAIN [None]
  - DYSPNOEA [None]
  - VISUAL ACUITY REDUCED [None]
